FAERS Safety Report 23809023 (Version 2)
Quarter: 2024Q2

REPORT INFORMATION
  Report Type: Spontaneous
  Country: US (occurrence: US)
  Receive Date: 20240502
  Receipt Date: 20240614
  Transmission Date: 20240716
  Serious: Yes (Death, Hospitalization)
  Sender: FDA-Public Use
  Company Number: US-TEVA-VS-3191073

PATIENT
  Age: 64 Year
  Sex: Male

DRUGS (2)
  1. MELPHALAN [Suspect]
     Active Substance: MELPHALAN
     Indication: Plasma cell myeloma
     Route: 065
  2. VANCOMYCIN [Suspect]
     Active Substance: VANCOMYCIN
     Indication: Staphylococcal infection
     Route: 065

REACTIONS (4)
  - Venoocclusive liver disease [Fatal]
  - Disseminated intravascular coagulation [Fatal]
  - Renal failure [Fatal]
  - Drug eruption [Unknown]
